FAERS Safety Report 6647458-5 (Version None)
Quarter: 2010Q1

REPORT INFORMATION
  Report Type: 
  Country: None (occurrence: None)
  Receive Date: 20100323
  Receipt Date: 20100323
  Transmission Date: 20100710
  Serious: No
  Sender: FDA-Public Use
  Company Number: None

PATIENT
  Age: 72 Year
  Sex: Male

DRUGS (1)
  1. CEFAZOLIN SODIUM [Suspect]
     Indication: ANTIBIOTIC PROPHYLAXIS
     Dosage: 2 GRAMS
     Dates: start: 20100225, end: 20100225

REACTIONS (1)
  - RASH ERYTHEMATOUS [None]
